FAERS Safety Report 6429230-4 (Version None)
Quarter: 2009Q4

REPORT INFORMATION
  Report Type: 
  Country: None (occurrence: None)
  Receive Date: 20091105
  Receipt Date: 20091026
  Transmission Date: 20100525
  Serious: Yes (Other)
  Sender: FDA-Public Use
  Company Number: PHEH2009US12614

PATIENT
  Sex: Female

DRUGS (6)
  1. EXFORGE [Suspect]
     Dosage: 160/10 MG,UNK
  2. PAPAVERINE [Suspect]
     Indication: DIZZINESS
     Dosage: 150 MG, UNK
  3. LIPITOR [Concomitant]
  4. TRICOR [Concomitant]
  5. ZETIA [Concomitant]
  6. ASPIRIN [Concomitant]
     Dosage: 135 MG, UNK

REACTIONS (7)
  - ANXIETY [None]
  - CHEST PAIN [None]
  - DEAFNESS [None]
  - DIZZINESS [None]
  - JOINT SWELLING [None]
  - PULMONARY ARTERIAL PRESSURE ABNORMAL [None]
  - THROMBOSIS [None]
